FAERS Safety Report 9735240 (Version 2)
Quarter: 2013Q4

REPORT INFORMATION
  Report Type: Spontaneous
  Country: US (occurrence: US)
  Receive Date: 20131206
  Receipt Date: 20131206
  Transmission Date: 20140711
  Serious: Yes (Hospitalization)
  Sender: FDA-Public Use
  Company Number: US-SA-2013SA118079

PATIENT
  Age: 47 Year
  Sex: Male
  Weight: 110 kg

DRUGS (2)
  1. LANTUS SOLOSTAR [Suspect]
     Indication: TYPE 2 DIABETES MELLITUS
     Dosage: DOSE:65 UNIT(S)
     Route: 051
     Dates: start: 2007
  2. SOLOSTAR [Concomitant]
     Dates: start: 2007

REACTIONS (3)
  - Adverse event [Not Recovered/Not Resolved]
  - Vision blurred [Not Recovered/Not Resolved]
  - Impaired work ability [Not Recovered/Not Resolved]
